FAERS Safety Report 8544563-3 (Version None)
Quarter: 2012Q3

REPORT INFORMATION
  Report Type: 
  Country: None (occurrence: None)
  Receive Date: 20120727
  Receipt Date: 20120725
  Transmission Date: 20120928
  Serious: Yes (Death, Hospitalization)
  Sender: FDA-Public Use
  Company Number: JP-ABBOTT-12P-087-0960322-00

PATIENT
  Sex: Male
  Weight: 65 kg

DRUGS (2)
  1. HUMIRA [Suspect]
     Indication: RHEUMATOID ARTHRITIS
     Route: 058
     Dates: start: 20100621, end: 20111216
  2. CLOPIDOGREL BISULFATE [Concomitant]
     Indication: CEREBRAL INFARCTION
     Dosage: 75 MG DAILY
     Route: 048
     Dates: start: 20101218, end: 20120117

REACTIONS (3)
  - INTERSTITIAL LUNG DISEASE [None]
  - SMALL INTESTINAL HAEMORRHAGE [None]
  - PNEUMONIA [None]
